FAERS Safety Report 23558277 (Version 1)
Quarter: 2024Q1

REPORT INFORMATION
  Report Type: Spontaneous
  Country: CA (occurrence: CA)
  Receive Date: 20240223
  Receipt Date: 20240223
  Transmission Date: 20240410
  Serious: Yes (Other)
  Sender: FDA-Public Use
  Company Number: None

PATIENT
  Age: 38 Year
  Sex: Female

DRUGS (14)
  1. METHOTREXATE [Suspect]
     Active Substance: METHOTREXATE
     Indication: Product used for unknown indication
     Route: 065
  2. COLCHICINE [Suspect]
     Active Substance: COLCHICINE
     Indication: Product used for unknown indication
     Dosage: TWO EVERY ONE DAY
     Route: 048
  3. FOLIC ACID [Suspect]
     Active Substance: FOLIC ACID
     Indication: Product used for unknown indication
     Route: 065
  4. PROGESTERONE [Suspect]
     Active Substance: PROGESTERONE
     Indication: Product used for unknown indication
     Dosage: 1 EVERY ONE DAY
     Route: 065
  5. VALACYCLOVIR HYDROCHLORIDE [Suspect]
     Active Substance: VALACYCLOVIR HYDROCHLORIDE
     Indication: Product used for unknown indication
     Route: 065
  6. ANAKINRA [Concomitant]
     Active Substance: ANAKINRA
     Indication: Product used for unknown indication
     Dosage: 1 EVERY ONE DAY
     Route: 058
  7. BILASTINE [Concomitant]
     Active Substance: BILASTINE
     Indication: Product used for unknown indication
     Route: 065
  8. BUDESONIDE\FORMOTEROL FUMARATE [Concomitant]
     Active Substance: BUDESONIDE\FORMOTEROL FUMARATE
     Indication: Product used for unknown indication
     Route: 065
  9. CYCLOBENZAPRINE [Concomitant]
     Active Substance: CYCLOBENZAPRINE
     Indication: Product used for unknown indication
     Route: 065
  10. HYDROMORPHONE [Concomitant]
     Active Substance: HYDROMORPHONE
     Indication: Product used for unknown indication
     Route: 065
  11. ACETYLCYSTEINE [Concomitant]
     Active Substance: ACETYLCYSTEINE
     Indication: Product used for unknown indication
     Route: 065
  12. PREDNISONE [Concomitant]
     Active Substance: PREDNISONE
     Indication: Product used for unknown indication
     Route: 065
  13. TRAZODONE [Concomitant]
     Active Substance: TRAZODONE HYDROCHLORIDE
     Indication: Product used for unknown indication
     Route: 065
  14. VENTOLIN [Concomitant]
     Active Substance: ALBUTEROL SULFATE
     Indication: Product used for unknown indication
     Route: 065

REACTIONS (40)
  - Asthma [Unknown]
  - Autoinflammatory disease [Unknown]
  - Back pain [Unknown]
  - Brain fog [Unknown]
  - Chondritis [Unknown]
  - Chondrodermatitis nodularis chronica helicis [Unknown]
  - Cold urticaria [Unknown]
  - COVID-19 [Unknown]
  - Decreased appetite [Unknown]
  - Depression [Unknown]
  - Dermatitis atopic [Unknown]
  - Diarrhoea [Unknown]
  - Diverticulitis [Unknown]
  - Eczema [Unknown]
  - Eustachian tube dysfunction [Unknown]
  - Fatigue [Unknown]
  - Fibromyalgia [Unknown]
  - Food allergy [Unknown]
  - Hepatic steatosis [Unknown]
  - Herpes simplex [Unknown]
  - Hypersensitivity [Unknown]
  - Hyperthermia malignant [Unknown]
  - Ichthyosis [Unknown]
  - Injury [Unknown]
  - Insomnia [Unknown]
  - Joint stiffness [Unknown]
  - Joint swelling [Unknown]
  - Migraine [Unknown]
  - Myalgia [Unknown]
  - Nausea [Unknown]
  - Obesity [Unknown]
  - Oedema peripheral [Unknown]
  - Pain [Unknown]
  - Pyrexia [Unknown]
  - Rash [Unknown]
  - Sleep deficit [Unknown]
  - Soft tissue swelling [Unknown]
  - Stress [Unknown]
  - Vasomotor rhinitis [Unknown]
  - Vomiting [Unknown]
